FAERS Safety Report 6646942 (Version 5)
Quarter: 2013Q2

REPORT INFORMATION
  Report Type: Spontaneous
  Country: GB (occurrence: GB)
  Receive Date: 20080522
  Receipt Date: 20130624
  Transmission Date: 20140414
  Serious: Yes (Other)
  Sender: FDA-Public Use
  Company Number: GB-PFIZER INC-GB-WYE-G01555808

PATIENT
  Age: 2 Year
  Sex: Male

DRUGS (5)
  1. IBUPROFEN [Suspect]
     Indication: JUVENILE IDIOPATHIC ARTHRITIS
     Dosage: 200 MG, 2X/DAY (2 / 1DAYS)
     Route: 048
     Dates: start: 200401
  2. METHOTREXATE SODIUM [Suspect]
     Indication: JUVENILE IDIOPATHIC ARTHRITIS
     Dosage: 7.5 MG, WEEKLY (1 / 1WEEKS)
     Route: 058
     Dates: start: 20030601, end: 20040129
  3. PIROXICAM [Suspect]
     Indication: JUVENILE IDIOPATHIC ARTHRITIS
     Dosage: UNK
     Route: 048
     Dates: start: 200401
  4. IRON [Concomitant]
     Dosage: 5 ML, 3X/DAY (3 / 1DAYS)
     Route: 065
     Dates: start: 200408
  5. TRIAMCINOLONE [Concomitant]
     Dosage: UNK
     Route: 065
     Dates: start: 200402

REACTIONS (3)
  - Alanine aminotransferase increased [Unknown]
  - Spondylitis [Unknown]
  - Musculoskeletal stiffness [Unknown]
